FAERS Safety Report 11846089 (Version 1)
Quarter: 2015Q4

REPORT INFORMATION
  Report Type: Spontaneous
  Country: US (occurrence: US)
  Receive Date: 20151217
  Receipt Date: 20151217
  Transmission Date: 20160305
  Serious: No
  Sender: FDA-Public Use
  Company Number: US-NOVOPROD-451606

PATIENT
  Age: 94 Year
  Sex: Female

DRUGS (1)
  1. LEVEMIR [Suspect]
     Active Substance: INSULIN DETEMIR
     Indication: PRODUCT USED FOR UNKNOWN INDICATION
     Dosage: 4 U, QD
     Route: 058
     Dates: start: 2015

REACTIONS (5)
  - Weight decreased [Unknown]
  - Hypokinesia [Unknown]
  - Asthenia [Unknown]
  - Urinary tract infection [Unknown]
  - Infrequent bowel movements [Unknown]

NARRATIVE: CASE EVENT DATE: 20150526
